FAERS Safety Report 6874220-0 (Version None)
Quarter: 2010Q3

REPORT INFORMATION
  Report Type: 
  Country: None (occurrence: None)
  Receive Date: 20100723
  Receipt Date: 20090519
  Transmission Date: 20110219
  Serious: Yes (Other)
  Sender: FDA-Public Use
  Company Number: US-PFIZER INC-2009209270

PATIENT
  Sex: Male
  Weight: 68.492 kg

DRUGS (2)
  1. CHANTIX [Suspect]
     Indication: SMOKING CESSATION THERAPY
     Dosage: UNK
     Route: 048
     Dates: start: 20090320, end: 20090101
  2. ALCOHOL [Concomitant]
     Dosage: UNK

REACTIONS (2)
  - ALCOHOL POISONING [None]
  - SUICIDAL IDEATION [None]
